FAERS Safety Report 9688908 (Version 2)
Quarter: 2013Q4

REPORT INFORMATION
  Report Type: Spontaneous
  Country: FR (occurrence: None)
  Receive Date: 20131112
  Receipt Date: 20131119
  Transmission Date: 20140711
  Serious: Yes (Other)
  Sender: FDA-Public Use
  Company Number: 2013000299

PATIENT
  Age: 88 Year
  Sex: Male

DRUGS (5)
  1. ACEON (PERIN DOPRIL ERBUMINE) TABLET, 8MG [Suspect]
     Indication: PRODUCT USED FOR UNKNOWN INDICATION
     Route: 048
     Dates: start: 201207
  2. ALPRAZOLAM (ALPRAZOLAM) [Concomitant]
  3. TAHOR (ATORVASTATIN) [Concomitant]
  4. BISOPROLOL BIOGARAN (BISOPROLOL HEMIFUMARATE) [Concomitant]
  5. KARDEGIC (ACETYLSALLCYLATE LYSINE) [Concomitant]

REACTIONS (2)
  - Toxic skin eruption [None]
  - Pruritus [None]
